FAERS Safety Report 7811503-1 (Version None)
Quarter: 2011Q4

REPORT INFORMATION
  Report Type: 
  Country: None (occurrence: None)
  Receive Date: 20111013
  Receipt Date: 20111013
  Transmission Date: 20120403
  Serious: No
  Sender: FDA-Public Use
  Company Number: None

PATIENT
  Age: 79 Year
  Sex: Female
  Weight: 61.234 kg

DRUGS (1)
  1. LIVALO [Suspect]
     Indication: HYPERLIPIDAEMIA
     Dosage: 4 MG
     Route: 048
     Dates: start: 20110120, end: 20111005

REACTIONS (1)
  - BLOOD CREATINE PHOSPHOKINASE INCREASED [None]
